FAERS Safety Report 8977053 (Version 1)
Quarter: 2012Q4

REPORT INFORMATION
  Report Type: 
  Country: BE (occurrence: BE)
  Receive Date: 20121220
  Receipt Date: 20121220
  Transmission Date: 20130627
  Serious: Yes (Hospitalization)
  Sender: FDA-Public Use
  Company Number: BE-JNJFOC-20121205391

PATIENT
  Age: 58 Year
  Sex: Male
  Weight: 94 kg

DRUGS (10)
  1. INFLIXIMAB, RECOMBINANT [Suspect]
     Indication: PRODUCT USED FOR UNKNOWN INDICATION
     Route: 042
  2. TOCILIZUMAB [Suspect]
     Indication: RHEUMATOID ARTHRITIS
     Route: 042
     Dates: start: 20060823, end: 20060823
  3. LEDERTREXATE /00113801/ [Suspect]
     Indication: PRODUCT USED FOR UNKNOWN INDICATION
     Route: 065
     Dates: start: 19970312, end: 20061005
  4. MEDROL [Suspect]
     Indication: PRODUCT USED FOR UNKNOWN INDICATION
     Route: 065
     Dates: start: 20060110
  5. ASAFLOW [Concomitant]
     Route: 065
     Dates: start: 2005
  6. RANITIDINE [Concomitant]
     Route: 065
     Dates: start: 200601
  7. SIPRALEXA [Concomitant]
     Route: 065
     Dates: start: 200601
  8. FOLIUMZUUR [Concomitant]
     Route: 065
     Dates: start: 19970312
  9. MESULID [Concomitant]
     Route: 065
     Dates: start: 20060110
  10. RITUXIMAB [Concomitant]
     Indication: RHEUMATOID ARTHRITIS
     Route: 065

REACTIONS (3)
  - Post transplant lymphoproliferative disorder [Recovered/Resolved]
  - Anal fissure [Recovered/Resolved]
  - Gingival infection [Not Recovered/Not Resolved]
